FAERS Safety Report 8297330-2 (Version None)
Quarter: 2012Q1

REPORT INFORMATION
  Report Type: 
  Country: None (occurrence: None)
  Receive Date: 20120322
  Receipt Date: 20111123
  Transmission Date: 20120608
  Serious: Yes (Hospitalization)
  Sender: FDA-Public Use
  Company Number: UTC-012762

PATIENT
  Age: 39 Year
  Sex: Female
  Weight: 64.5 kg

DRUGS (5)
  1. TYVASO [Suspect]
     Indication: COR PULMONALE CHRONIC
     Dosage: 6-54 MICROGRAMS (4 IN 1 D),INHALATION
     Route: 055
     Dates: start: 20110520
  2. TRACLEER [Concomitant]
  3. COUMADIN [Concomitant]
  4. REVATIO [Concomitant]
  5. DIURETICS (DIURETICS) [Concomitant]

REACTIONS (1)
  - PNEUMONIA [None]
